FAERS Safety Report 17434273 (Version 4)
Quarter: 2020Q4

REPORT INFORMATION
  Report Type: Spontaneous
  Country: US (occurrence: US)
  Receive Date: 20200219
  Receipt Date: 20201015
  Transmission Date: 20210113
  Serious: No
  Sender: FDA-Public Use
  Company Number: US-PFIZER INC-2020068961

PATIENT
  Age: 58 Year
  Sex: Female

DRUGS (1)
  1. XELJANZ XR [Suspect]
     Active Substance: TOFACITINIB CITRATE
     Indication: RHEUMATOID ARTHRITIS
     Dosage: 11 MG, DAILY
     Route: 048
     Dates: start: 20200103, end: 20200827

REACTIONS (11)
  - Drug ineffective [Unknown]
  - Arthralgia [Not Recovered/Not Resolved]
  - Influenza [Recovering/Resolving]
  - Fatigue [Recovering/Resolving]
  - Back pain [Not Recovered/Not Resolved]
  - Neuralgia [Unknown]
  - Pyrexia [Recovering/Resolving]
  - Chest pain [Unknown]
  - Herpes zoster [Unknown]
  - Pain in extremity [Unknown]
  - Condition aggravated [Unknown]
